FAERS Safety Report 8841997 (Version 2)
Quarter: 2014Q1

REPORT INFORMATION
  Report Type: Spontaneous
  Country: PL (occurrence: PL)
  Receive Date: 20121016
  Receipt Date: 20140219
  Transmission Date: 20141002
  Serious: Yes (Other)
  Sender: FDA-Public Use
  Company Number: PL-JNJFOC-20121006962

PATIENT
  Sex: Female

DRUGS (1)
  1. CONCETRATED IBUPROFEN [Suspect]
     Indication: ATTENTION DEFICIT/HYPERACTIVITY DISORDER
     Route: 048

REACTIONS (5)
  - Electrocardiogram QT prolonged [Recovered/Resolved]
  - Arrhythmia [Recovered/Resolved]
  - Supraventricular extrasystoles [Recovered/Resolved]
  - Hypotension [Unknown]
  - Heart rate increased [Unknown]
